FAERS Safety Report 5128664-8 (Version None)
Quarter: 2006Q4

REPORT INFORMATION
  Report Type: 
  Country: None (occurrence: None)
  Receive Date: 20061017
  Receipt Date: 20061005
  Transmission Date: 20070319
  Serious: Yes (Death)
  Sender: FDA-Public Use
  Company Number: US-ROCHE-466162

PATIENT
  Age: 49 Year
  Sex: Male
  Weight: 104.3 kg

DRUGS (4)
  1. CELLCEPT [Suspect]
     Route: 048
     Dates: start: 20030615
  2. PREDNISONE TAB [Concomitant]
     Route: 048
  3. NEORAL [Concomitant]
     Route: 048
  4. COUMADIN [Concomitant]
     Route: 065

REACTIONS (2)
  - CEREBRAL HAEMORRHAGE [None]
  - DIARRHOEA [None]
